FAERS Safety Report 9051374 (Version 1)
Quarter: 2013Q1

REPORT INFORMATION
  Report Type: Spontaneous
  Country: FR (occurrence: FR)
  Receive Date: 20130206
  Receipt Date: 20130206
  Transmission Date: 20140127
  Serious: Yes (Hospitalization, Other)
  Sender: FDA-Public Use
  Company Number: FR-PFIZER INC-2013046947

PATIENT
  Age: 97 Year
  Sex: Female

DRUGS (2)
  1. CORDARONE [Suspect]
     Dosage: UNK
     Route: 048
  2. HEMIGOXINE NATIVELLE [Suspect]
     Dosage: UNK
     Route: 048

REACTIONS (2)
  - Bradycardia [Unknown]
  - Hyperkalaemia [Unknown]
